FAERS Safety Report 8270361 (Version 2)
Quarter: 2013Q4

REPORT INFORMATION
  Report Type: Report from Study
  Country: GB (occurrence: GB)
  Receive Date: 20111201
  Receipt Date: 20131008
  Transmission Date: 20140711
  Serious: Yes (Disabling)
  Sender: FDA-Public Use
  Company Number: GB-UCBSA-046518

PATIENT
  Age: 57 Year
  Sex: Female
  Weight: 80 kg

DRUGS (12)
  1. CIMZIA [Suspect]
     Indication: RHEUMATOID ARTHRITIS
     Route: 058
     Dates: start: 201102, end: 201107
  2. FOLIC ACID [Concomitant]
     Indication: VITAMIN SUPPLEMENTATION
     Route: 048
     Dates: start: 200906
  3. RISEDRONATE [Concomitant]
     Indication: OSTEOPOROSIS
     Route: 048
     Dates: start: 201001, end: 201102
  4. CALCITROL [Concomitant]
     Indication: MINERAL SUPPLEMENTATION
     Dosage: 2 TABLETS
     Route: 048
     Dates: start: 201001
  5. TRAMADOL [Concomitant]
     Indication: ANALGESIC THERAPY
     Route: 048
     Dates: start: 201102
  6. FRUSEMIDE [Concomitant]
     Indication: LYMPHOEDEMA
     Route: 048
     Dates: start: 201102
  7. SPIRONALACTONE [Concomitant]
     Indication: LYMPHOEDEMA
     Route: 048
     Dates: start: 201102
  8. GABAPENTIN [Concomitant]
     Indication: PAIN
     Route: 048
     Dates: start: 201102
  9. DOSULEPIN [Concomitant]
     Indication: DEPRESSION
     Dosage: AT NIGHT
     Route: 048
     Dates: start: 201102
  10. LOPERAMIDE [Concomitant]
     Indication: DIARRHOEA
     Route: 048
  11. SUMATRIPTAN [Concomitant]
     Indication: MIGRAINE
     Route: 048
  12. ARCOXIA [Concomitant]
     Indication: PAIN
     Route: 048
     Dates: end: 201102

REACTIONS (6)
  - Tendonitis [Recovered/Resolved]
  - Pain [Recovered/Resolved]
  - Swelling [Recovered/Resolved]
  - Alopecia [Recovered/Resolved]
  - Pruritus [Recovered/Resolved]
  - Rash [Recovered/Resolved]
